FAERS Safety Report 7279885-X (Version None)
Quarter: 2011Q1

REPORT INFORMATION
  Report Type: 
  Country: None (occurrence: None)
  Receive Date: 20110208
  Receipt Date: 20101116
  Transmission Date: 20110831
  Serious: Yes (Other)
  Sender: FDA-Public Use
  Company Number: CA-BAYER-2010-001653

PATIENT
  Sex: Female

DRUGS (2)
  1. YASMIN [Suspect]
     Indication: CONTRACEPTION
  2. ALDACTONE [Concomitant]
     Indication: ACNE

REACTIONS (2)
  - HYPOTENSION [None]
  - SYNCOPE [None]
